FAERS Safety Report 8237682-2 (Version None)
Quarter: 2012Q1

REPORT INFORMATION
  Report Type: 
  Country: None (occurrence: None)
  Receive Date: 20120327
  Receipt Date: 20120316
  Transmission Date: 20120608
  Serious: Yes (Hospitalization)
  Sender: FDA-Public Use
  Company Number: US-ACTELION-A-NJ2011-58910

PATIENT

DRUGS (4)
  1. REVATIO [Concomitant]
  2. OXYGEN [Concomitant]
  3. COUMADIN [Concomitant]
  4. TRACLEER [Suspect]
     Indication: PULMONARY ARTERIAL HYPERTENSION
     Dosage: UNK
     Route: 048
     Dates: start: 20090916

REACTIONS (4)
  - POLYP [None]
  - HAEMORRHAGE [None]
  - RECTAL HAEMORRHAGE [None]
  - HAEMORRHOIDS [None]
